FAERS Safety Report 7814435-8 (Version None)
Quarter: 2011Q4

REPORT INFORMATION
  Report Type: 
  Country: None (occurrence: None)
  Receive Date: 20111014
  Receipt Date: 20111011
  Transmission Date: 20120403
  Serious: Yes (Other)
  Sender: FDA-Public Use
  Company Number: PHHY2010US85023

PATIENT
  Sex: Female
  Weight: 77.551 kg

DRUGS (2)
  1. IBUPROFEN [Concomitant]
  2. EXTAVIA [Suspect]
     Indication: MULTIPLE SCLEROSIS
     Dosage: 0.25 MG, QOD
     Route: 058
     Dates: start: 20100301

REACTIONS (12)
  - MEMORY IMPAIRMENT [None]
  - INJECTION SITE HAEMATOMA [None]
  - BLISTER [None]
  - SKIN LESION [None]
  - DIZZINESS [None]
  - STAPHYLOCOCCAL INFECTION [None]
  - AGITATION [None]
  - FATIGUE [None]
  - INJECTION SITE SCAR [None]
  - INJECTION SITE VESICLES [None]
  - IRRITABILITY [None]
  - PRURITUS [None]
